FAERS Safety Report 10379607 (Version 6)
Quarter: 2016Q2

REPORT INFORMATION
  Report Type: Report from Study
  Country: US (occurrence: US)
  Receive Date: 20140812
  Receipt Date: 20160510
  Transmission Date: 20160815
  Serious: Yes (Hospitalization, Other)
  Sender: FDA-Public Use
  Company Number: PHEH2014US015773

PATIENT
  Age: 2 Year
  Sex: Male
  Weight: 15.42 kg

DRUGS (11)
  1. LEVOCARNITINE. [Concomitant]
     Active Substance: LEVOCARNITINE
     Indication: BLOOD TEST ABNORMAL
     Dosage: 1 DF, BID
     Route: 048
  2. DEPAKOTE [Concomitant]
     Active Substance: DIVALPROEX SODIUM
     Indication: SEIZURE
     Dosage: 500 MG, TID
     Route: 048
  3. LEVOCARNITINE. [Concomitant]
     Active Substance: LEVOCARNITINE
     Dosage: 1.5 DF, TID
     Route: 048
  4. DILANTIN [Concomitant]
     Active Substance: PHENYTOIN
     Dosage: 1.5 DF, TID
     Route: 048
     Dates: start: 20141001
  5. DILANTIN [Concomitant]
     Active Substance: PHENYTOIN
     Indication: SEIZURE
     Dosage: 75 MG IN AM AND AT NIGHT AND 50 MG IN AFTERNOON
     Route: 048
  6. AFINITOR [Suspect]
     Active Substance: EVEROLIMUS
     Indication: GANGLIOGLIOMA
     Dosage: 2 MG, QOD AND 4 MG ON OPPOSITE DAYS
     Route: 048
     Dates: start: 20140731
  7. ONFI [Concomitant]
     Active Substance: CLOBAZAM
     Dosage: 1.25 DF, QD
     Route: 048
  8. AFINITOR [Suspect]
     Active Substance: EVEROLIMUS
     Indication: ASTROCYTOMA, LOW GRADE
     Dosage: 2 MG, QD
     Route: 048
     Dates: start: 20140514, end: 20141029
  9. AFINITOR [Suspect]
     Active Substance: EVEROLIMUS
     Dosage: 2 MG, QD
     Route: 048
     Dates: start: 20141103
  10. LYSINE [Concomitant]
     Active Substance: LYSINE
     Indication: ORAL PAIN
     Route: 048
  11. ONFI [Concomitant]
     Active Substance: CLOBAZAM
     Indication: SEIZURE
     Dosage: 1 DF, QD
     Route: 048

REACTIONS (10)
  - Ear disorder [Recovering/Resolving]
  - Pyrexia [Recovered/Resolved]
  - Brain neoplasm [Recovering/Resolving]
  - Disease progression [Unknown]
  - Nodule [Not Recovered/Not Resolved]
  - Ear infection [Recovering/Resolving]
  - Concomitant disease aggravated [Recovering/Resolving]
  - Muscular weakness [Unknown]
  - Seizure [Recovering/Resolving]
  - Vomiting [Recovered/Resolved]

NARRATIVE: CASE EVENT DATE: 20140705
